FAERS Safety Report 9636394 (Version 1)
Quarter: 2013Q4

REPORT INFORMATION
  Report Type: Spontaneous
  Country: JP (occurrence: None)
  Receive Date: 20131017
  Receipt Date: 20131017
  Transmission Date: 20140711
  Serious: Yes (Hospitalization)
  Sender: FDA-Public Use
  Company Number: SYM-2013-11294

PATIENT
  Age: 45 Year
  Sex: Female
  Weight: 53.4 kg

DRUGS (1)
  1. HYDROCORTISONE [Suspect]
     Indication: ADRENOCORTICAL STEROID THERAPY

REACTIONS (3)
  - Palpitations [None]
  - Fatigue [None]
  - Hyperthyroidism [None]
